FAERS Safety Report 9365657 (Version 1)
Quarter: 2013Q2

REPORT INFORMATION
  Report Type: Spontaneous
  Country: US (occurrence: None)
  Receive Date: 20130624
  Receipt Date: 20130624
  Transmission Date: 20140414
  Serious: Yes (Hospitalization, Other)
  Sender: FDA-Public Use
  Company Number: None

PATIENT
  Age: 33 Year
  Sex: Female
  Weight: 72.58 kg

DRUGS (1)
  1. XEOMIN [Suspect]
     Indication: SKIN WRINKLING

REACTIONS (5)
  - Pharyngeal oedema [None]
  - Paraesthesia oral [None]
  - Hypoaesthesia oral [None]
  - Cough [None]
  - Drug hypersensitivity [None]
